FAERS Safety Report 4701230-1 (Version None)
Quarter: 2005Q2

REPORT INFORMATION
  Report Type: 
  Country: None (occurrence: None)
  Receive Date: 20050628
  Receipt Date: 20050622
  Transmission Date: 20051028
  Serious: Yes (Other)
  Sender: FDA-Public Use
  Company Number: US-GLAXOSMITHKLINE-A0563722A

PATIENT
  Age: 35 Year
  Sex: Female
  Weight: 72 kg

DRUGS (4)
  1. TUMS SMOOTH DISSOLVE TABLETS, PEPPERMINT [Suspect]
     Route: 048
     Dates: start: 20050601
  2. PREVACID [Suspect]
     Dosage: 15MG PER DAY
     Route: 048
  3. BIRTH CONTROL PILLS [Concomitant]
  4. PERCOCET [Concomitant]
     Dates: start: 20050601, end: 20050619

REACTIONS (15)
  - ABDOMINAL PAIN UPPER [None]
  - AURICULAR SWELLING [None]
  - CONVULSION [None]
  - DIARRHOEA [None]
  - DRUG INTERACTION [None]
  - ERYTHEMA [None]
  - FATIGUE [None]
  - LOSS OF CONSCIOUSNESS [None]
  - MENTAL IMPAIRMENT [None]
  - PRURITUS GENERALISED [None]
  - RESPIRATORY ARREST [None]
  - RETCHING [None]
  - SWELLING FACE [None]
  - TINNITUS [None]
  - VISION BLURRED [None]
